FAERS Safety Report 4970575-2 (Version None)
Quarter: 2006Q2

REPORT INFORMATION
  Report Type: 
  Country: None (occurrence: None)
  Receive Date: 20060412
  Receipt Date: 20060306
  Transmission Date: 20061013
  Serious: Yes (Hospitalization)
  Sender: FDA-Public Use
  Company Number: US-MERCK-0603USA01052

PATIENT
  Age: 44 Year
  Sex: Female

DRUGS (1)
  1. VIOXX [Suspect]
     Route: 048

REACTIONS (4)
  - CEREBROVASCULAR ACCIDENT [None]
  - NECK PAIN [None]
  - SINUSITIS [None]
  - VITAMIN B12 DEFICIENCY [None]
